FAERS Safety Report 14382196 (Version 1)
Quarter: 2018Q1

REPORT INFORMATION
  Report Type: Report from Study
  Country: FR (occurrence: FR)
  Receive Date: 20180112
  Receipt Date: 20180112
  Transmission Date: 20180509
  Serious: Yes (Other)
  Sender: FDA-Public Use
  Company Number: PHHY2018FR001302

PATIENT
  Age: 7 Year
  Sex: Male
  Weight: 19 kg

DRUGS (1)
  1. OMNITROPE [Suspect]
     Active Substance: SOMATROPIN
     Indication: GROWTH HORMONE DEFICIENCY
     Dosage: UNK
     Route: 058
     Dates: start: 201505

REACTIONS (3)
  - Incorrect dose administered by device [Unknown]
  - Growth retardation [Unknown]
  - Device malfunction [Unknown]
